FAERS Safety Report 25173252 (Version 1)
Quarter: 2025Q2

REPORT INFORMATION
  Report Type: Report from Study
  Country: US (occurrence: US)
  Receive Date: 20250408
  Receipt Date: 20250408
  Transmission Date: 20250716
  Serious: Yes (Other)
  Sender: NOVARTIS
  Company Number: US-002147023-NVSC2025US056485

PATIENT
  Age: 85 Year
  Sex: Female

DRUGS (1)
  1. ENTRESTO [Suspect]
     Active Substance: SACUBITRIL\VALSARTAN
     Indication: Product used for unknown indication
     Dosage: 49 MG, BID (49/51 MG)
     Route: 048
     Dates: start: 20250111

REACTIONS (1)
  - Urinary retention [Unknown]

NARRATIVE: CASE EVENT DATE: 20250330
